FAERS Safety Report 21486996 (Version 1)
Quarter: 2022Q4

REPORT INFORMATION
  Report Type: Spontaneous
  Country: RU (occurrence: RU)
  Receive Date: 20221020
  Receipt Date: 20221020
  Transmission Date: 20230112
  Serious: Yes (Other)
  Sender: FDA-Public Use
  Company Number: RU-SA-2022SA427874

PATIENT
  Age: 50 Year
  Sex: Female
  Weight: 72 kg

DRUGS (2)
  1. TAXOTERE [Suspect]
     Active Substance: DOCETAXEL
     Indication: Targeted cancer therapy
     Dosage: 180 MG, 1X
     Route: 042
     Dates: start: 20220816, end: 20220830
  2. GEMCITABINE [Concomitant]
     Active Substance: GEMCITABINE
     Indication: Targeted cancer therapy
     Dosage: UNK
     Route: 042
     Dates: start: 20220909, end: 20220916

REACTIONS (4)
  - Skin toxicity [Recovering/Resolving]
  - Skin maceration [Recovering/Resolving]
  - Erythema [Recovering/Resolving]
  - Skin exfoliation [Recovering/Resolving]

NARRATIVE: CASE EVENT DATE: 20220816
